FAERS Safety Report 4914786-0 (Version None)
Quarter: 2006Q1

REPORT INFORMATION
  Report Type: 
  Country: None (occurrence: None)
  Receive Date: 20060113
  Receipt Date: 20051019
  Transmission Date: 20060701
  Serious: No
  Sender: FDA-Public Use
  Company Number: 2005SP003609

PATIENT
  Age: 53 Year
  Sex: Female
  Weight: 112.4921 kg

DRUGS (4)
  1. LUNESTA [Suspect]
     Indication: INSOMNIA
     Dosage: 2 MG; HS ; ORAL
     Route: 048
     Dates: start: 20050101, end: 20050101
  2. PRILOSEC [Concomitant]
  3. PRAVASTATIN [Concomitant]
  4. ESTRADIOL [Concomitant]

REACTIONS (4)
  - DRUG INEFFECTIVE [None]
  - DYSGEUSIA [None]
  - HEADACHE [None]
  - INSOMNIA [None]
